FAERS Safety Report 11360481 (Version 1)
Quarter: 2015Q3

REPORT INFORMATION
  Report Type: Report from Study
  Country: US (occurrence: US)
  Receive Date: 20150810
  Receipt Date: 20150810
  Transmission Date: 20151125
  Serious: Yes (Other)
  Sender: FDA-Public Use
  Company Number: PHEH2014US026138

PATIENT
  Age: 44 Year
  Sex: Female

DRUGS (4)
  1. EXTAVIA [Suspect]
     Active Substance: INTERFERON BETA-1B
     Indication: MULTIPLE SCLEROSIS
     Dosage: 0.0625 MG, QOD (0.25 ML WEEK 1 AND 2)
     Route: 058
  2. EXTAVIA [Suspect]
     Active Substance: INTERFERON BETA-1B
     Dosage: 0.125 MG, QOD (0.5 ML WEEK 3 AND 4)
     Route: 058
  3. EXTAVIA [Suspect]
     Active Substance: INTERFERON BETA-1B
     Dosage: 0.1875 MG, QOD (0.75 ML WEEK 5 AND 6)
     Route: 058
  4. EXTAVIA [Suspect]
     Active Substance: INTERFERON BETA-1B
     Dosage: 0.25 MG, QOD (1 ML WEEK 7 AND ABOVE)
     Route: 058
     Dates: end: 201411

REACTIONS (4)
  - Injection site pruritus [Unknown]
  - Injection site urticaria [Unknown]
  - Multiple sclerosis relapse [Unknown]
  - Injection site erythema [Unknown]

NARRATIVE: CASE EVENT DATE: 201411
